FAERS Safety Report 5495445-5 (Version None)
Quarter: 2007Q4

REPORT INFORMATION
  Report Type: 
  Country: None (occurrence: None)
  Receive Date: 20071023
  Receipt Date: 20071018
  Transmission Date: 20080405
  Serious: Yes (Death, Hospitalization)
  Sender: FDA-Public Use
  Company Number: 2007-02838

PATIENT
  Age: 42 Year
  Sex: Female
  Weight: 62.8 kg

DRUGS (2)
  1. VELCADE [Suspect]
     Indication: NON-SMALL CELL LUNG CANCER
     Dosage: 2.00 MG/M2, INTRAVENOUS
     Route: 042
     Dates: start: 20070616, end: 20070714
  2. ALIMTA [Suspect]
     Indication: NON-SMALL CELL LUNG CANCER
     Dosage: 500.00 MG/M2, INTRAVENOUS
     Route: 042
     Dates: start: 20070616, end: 20070707

REACTIONS (5)
  - DISEASE PROGRESSION [None]
  - GENERAL PHYSICAL HEALTH DETERIORATION [None]
  - METASTASES TO CENTRAL NERVOUS SYSTEM [None]
  - METASTASES TO LYMPH NODES [None]
  - NON-SMALL CELL LUNG CANCER [None]
